FAERS Safety Report 11454536 (Version 2)
Quarter: 2015Q4

REPORT INFORMATION
  Report Type: Spontaneous
  Country: US (occurrence: US)
  Receive Date: 20150903
  Receipt Date: 20151110
  Transmission Date: 20160304
  Serious: Yes (Hospitalization)
  Sender: FDA-Public Use
  Company Number: US-CELGENEUS-USA-2015084582

PATIENT
  Age: 60 Year
  Sex: Female
  Weight: 89.98 kg

DRUGS (12)
  1. VIDAZA [Suspect]
     Active Substance: AZACITIDINE
     Indication: LEUKAEMIA
     Route: 058
     Dates: start: 20150527
  2. PF 04449913 OR PLACEBO [Suspect]
     Active Substance: GLASDEGIB
     Indication: LEUKAEMIA
     Route: 048
     Dates: start: 20150528, end: 20150619
  3. VIDAZA [Suspect]
     Active Substance: AZACITIDINE
     Route: 048
     Dates: start: 20150624
  4. LEXAPRO [Concomitant]
     Active Substance: ESCITALOPRAM OXALATE
     Indication: DEPRESSION
     Route: 065
     Dates: start: 20150302
  5. NORVASC [Concomitant]
     Active Substance: AMLODIPINE BESYLATE
     Indication: HYPERTENSION
     Dosage: .75 PERCENT
     Route: 065
     Dates: start: 19960601, end: 20150610
  6. PF 04449913 OR PLACEBO [Suspect]
     Active Substance: GLASDEGIB
     Route: 065
     Dates: start: 20150624
  7. VIDAZA [Suspect]
     Active Substance: AZACITIDINE
     Route: 048
     Dates: start: 20150528, end: 20150617
  8. KYTRIL [Concomitant]
     Active Substance: GRANISETRON HYDROCHLORIDE
     Indication: NAUSEA
     Route: 065
     Dates: start: 20150602
  9. METRONIDAZOLE. [Concomitant]
     Active Substance: METRONIDAZOLE
     Indication: ROSACEA
     Route: 065
     Dates: start: 20140601
  10. HYDROCHLOROTHIAZIDE. [Concomitant]
     Active Substance: HYDROCHLOROTHIAZIDE
     Indication: HYPERTENSION
     Dosage: 40 MILLIGRAM
     Route: 048
     Dates: start: 20150615, end: 20150620
  11. QUINAPRIL [Concomitant]
     Active Substance: QUINAPRIL\QUINAPRIL HYDROCHLORIDE
     Indication: HYPERTENSION
     Route: 065
     Dates: start: 19960601, end: 20150610
  12. TRIAMTERENE. [Concomitant]
     Active Substance: TRIAMTERENE
     Indication: LYMPHOEDEMA
     Dosage: 37.5 MILLIGRAM
     Route: 065
     Dates: start: 20150615, end: 20150620

REACTIONS (2)
  - Pyrexia [Recovered/Resolved]
  - Neutropenia [Recovered/Resolved]

NARRATIVE: CASE EVENT DATE: 20150615
